FAERS Safety Report 8934944 (Version 1)
Quarter: 2012Q4

REPORT INFORMATION
  Report Type: 
  Country: US (occurrence: US)
  Receive Date: 20121129
  Receipt Date: 20121129
  Transmission Date: 20130627
  Serious: Yes (Other)
  Sender: FDA-Public Use
  Company Number: US-US-EMD SERONO, INC.-7177550

PATIENT
  Age: 60 None
  Sex: Male

DRUGS (1)
  1. SEROSTIM [(SOMATROPIN (RDNA ORIGIN) FOR INJECTION)] [Suspect]
     Indication: HIV WASTING SYNDROME
     Route: 058
     Dates: start: 201205

REACTIONS (3)
  - Pneumonia [Unknown]
  - Nerve injury [Unknown]
  - Nasopharyngitis [Unknown]
